FAERS Safety Report 13614717 (Version 3)
Quarter: 2017Q2

REPORT INFORMATION
  Report Type: Spontaneous
  Country: TR (occurrence: TR)
  Receive Date: 20170606
  Receipt Date: 20170619
  Transmission Date: 20170830
  Serious: Yes (Death, Life-Threatening, Hospitalization, Other)
  Sender: FDA-Public Use
  Company Number: TR-PFIZER INC-2017242054

PATIENT
  Age: 74 Year
  Sex: Male

DRUGS (1)
  1. DOXORUBICIN HCL [Suspect]
     Active Substance: DOXORUBICIN HYDROCHLORIDE
     Indication: HEPATOCELLULAR CARCINOMA
     Dosage: UNK (DRUG-ELUTING BEAD TRANSARTERIAL CHEMOEMBOLIZATION)

REACTIONS (2)
  - Hepatic necrosis [Fatal]
  - Liver abscess [Fatal]
